FAERS Safety Report 9909672 (Version 1)
Quarter: 2014Q1

REPORT INFORMATION
  Report Type: Report from Study
  Country: PL (occurrence: PL)
  Receive Date: 20140219
  Receipt Date: 20140219
  Transmission Date: 20141002
  Serious: Yes (Hospitalization)
  Sender: FDA-Public Use
  Company Number: PL-TEVA-463167USA

PATIENT
  Age: 67 Year
  Sex: Female
  Weight: 58.3 kg

DRUGS (5)
  1. BENDAMUSTINE [Suspect]
     Indication: MANTLE CELL LYMPHOMA
     Dosage: FREQUENCY: DAY 1 AND 2 EVERY 28 DAYS; CYCLIC
     Route: 042
     Dates: start: 20140130
  2. BENDAMUSTINE [Suspect]
     Dosage: FREQUENCY: DAY 1 AND 2 EVERY 28 DAYS; CYCLIC
     Route: 042
     Dates: start: 20140131
  3. RITUXIMAB [Suspect]
     Indication: MANTLE CELL LYMPHOMA
     Dosage: FREQUENCY:  1 IN 28 DAYS; CYCLIC
     Route: 042
     Dates: start: 20140130
  4. IBRUTINIB/PLACEBO [Suspect]
     Indication: MANTLE CELL LYMPHOMA
     Dosage: 560 MILLIGRAM DAILY;
     Route: 048
     Dates: start: 20140130
  5. IBRUTINIB/PLACEBO [Suspect]
     Dosage: 560 MILLIGRAM DAILY;
     Route: 048
     Dates: start: 20140205

REACTIONS (7)
  - Mood altered [Recovered/Resolved]
  - Syncope [Recovered/Resolved]
  - Decreased appetite [Recovered/Resolved]
  - Vomiting [Recovered/Resolved]
  - Nausea [Recovered/Resolved]
  - Malaise [Not Recovered/Not Resolved]
  - Diarrhoea [Recovered/Resolved]
